FAERS Safety Report 7986783-2 (Version None)
Quarter: 2011Q4

REPORT INFORMATION
  Report Type: 
  Country: None (occurrence: None)
  Receive Date: 20111216
  Receipt Date: 20110225
  Transmission Date: 20120403
  Serious: No
  Sender: FDA-Public Use
  Company Number: US-BRISTOL-MYERS SQUIBB COMPANY-15570351

PATIENT
  Age: 33 Year
  Sex: Male

DRUGS (3)
  1. ABILIFY [Suspect]
     Indication: ANXIETY
  2. ZOLOFT [Suspect]
  3. ABILIFY [Suspect]
     Indication: RESTLESSNESS

REACTIONS (4)
  - ANXIETY [None]
  - RESTLESSNESS [None]
  - MUSCLE TIGHTNESS [None]
  - INSOMNIA [None]
